FAERS Safety Report 6178053-2 (Version None)
Quarter: 2009Q2

REPORT INFORMATION
  Report Type: 
  Country: None (occurrence: None)
  Receive Date: 20090504
  Receipt Date: 20090127
  Transmission Date: 20091009
  Serious: No
  Sender: FDA-Public Use
  Company Number: US-ALEXION-A200900072

PATIENT
  Sex: Female

DRUGS (4)
  1. SOLIRIS [Suspect]
     Indication: PAROXYSMAL NOCTURNAL HAEMOGLOBINURIA
     Dosage: 600 MG, QW
     Route: 042
     Dates: start: 20090120
  2. LOVENOX [Concomitant]
     Indication: THROMBOSIS
     Dosage: 100 MG/ML, BID
  3. FOLIC ACID [Concomitant]
     Dosage: 3 G, QD
     Route: 048
  4. TYLENOL (CAPLET) [Concomitant]
     Indication: HEADACHE
     Dosage: UNK
     Dates: start: 20090121

REACTIONS (2)
  - CHEST DISCOMFORT [None]
  - HEADACHE [None]
